FAERS Safety Report 6100530-0 (Version None)
Quarter: 2009Q1

REPORT INFORMATION
  Report Type: 
  Country: None (occurrence: None)
  Receive Date: 20090303
  Receipt Date: 20090227
  Transmission Date: 20090719
  Serious: Yes (Death)
  Sender: FDA-Public Use
  Company Number: JP-ASTRAZENECA-2009AP00672

PATIENT
  Age: 84 Year
  Sex: Male
  Weight: 52 kg

DRUGS (8)
  1. CASODEX [Suspect]
     Indication: PROSTATE CANCER
     Route: 048
     Dates: start: 20081114, end: 20090120
  2. TAKEPRON [Concomitant]
     Indication: GASTRIC ULCER
     Route: 048
     Dates: start: 20081022, end: 20090131
  3. SUCRALFATE [Concomitant]
     Indication: GASTRIC ULCER
     Route: 048
     Dates: start: 20081022, end: 20090131
  4. PROMAC [Concomitant]
     Indication: GASTRIC ULCER
     Route: 048
     Dates: start: 20081022, end: 20090131
  5. MAGLAX [Concomitant]
     Indication: GASTRIC ULCER
     Route: 048
     Dates: start: 20081022
  6. SPIROPENT [Concomitant]
     Indication: PROSTATE CANCER
     Route: 048
     Dates: end: 20090119
  7. NORVASC [Concomitant]
     Indication: HYPERTENSION
     Route: 048
     Dates: end: 20090131
  8. GLIMICRON [Concomitant]
     Indication: DIABETES MELLITUS
     Route: 048
     Dates: end: 20090118

REACTIONS (1)
  - INTERSTITIAL LUNG DISEASE [None]
